FAERS Safety Report 19918654 (Version 1)
Quarter: 2021Q4

REPORT INFORMATION
  Report Type: Spontaneous
  Country: CA (occurrence: CA)
  Receive Date: 20211004
  Receipt Date: 20211004
  Transmission Date: 20220303
  Serious: Yes (Other)
  Sender: FDA-Public Use
  Company Number: CA-PFIZER INC-202101281807

PATIENT
  Age: 69 Year
  Sex: Female
  Weight: 55 kg

DRUGS (2)
  1. METHOTREXATE SODIUM [Suspect]
     Active Substance: METHOTREXATE SODIUM
     Dosage: 26 MG, WEEKLY
  2. PREDNISONE [Concomitant]
     Active Substance: PREDNISONE
     Dosage: 5 MG

REACTIONS (5)
  - Rheumatoid arthritis [Unknown]
  - Joint swelling [Unknown]
  - Arthralgia [Unknown]
  - Musculoskeletal stiffness [Not Recovered/Not Resolved]
  - Inflammation [Unknown]
